FAERS Safety Report 25232574 (Version 1)
Quarter: 2025Q2

REPORT INFORMATION
  Report Type: Spontaneous
  Country: US (occurrence: US)
  Receive Date: 20250424
  Receipt Date: 20250424
  Transmission Date: 20250717
  Serious: No
  Sender: SANOFI AVENTIS
  Company Number: US-SA-2025SA116602

PATIENT
  Age: 13 Year
  Sex: Female
  Weight: 54.55 kg

DRUGS (1)
  1. DUPIXENT [Suspect]
     Active Substance: DUPILUMAB
     Indication: Illness
     Route: 058

REACTIONS (3)
  - Injection site rash [Unknown]
  - Injection site erythema [Unknown]
  - Injection site swelling [Unknown]
